FAERS Safety Report 4648725-7 (Version None)
Quarter: 2005Q2

REPORT INFORMATION
  Report Type: 
  Country: None (occurrence: None)
  Receive Date: 20050427
  Receipt Date: 20050412
  Transmission Date: 20051028
  Serious: Yes (Other)
  Sender: FDA-Public Use
  Company Number: USA050392972

PATIENT
  Age: 79 Year
  Sex: Female
  Weight: 75 kg

DRUGS (7)
  1. CYMBALTA [Suspect]
     Indication: POLYNEUROPATHY
     Dosage: 60 MG DAY
  2. BUMEX [Concomitant]
  3. LOTREL [Concomitant]
  4. CLONIDINE [Concomitant]
  5. TOPROL-XL [Concomitant]
  6. COUMADIN [Concomitant]
  7. PRAVACHOL [Concomitant]

REACTIONS (4)
  - HYPOTENSION [None]
  - NAUSEA [None]
  - VERTIGO [None]
  - VOMITING [None]
